FAERS Safety Report 14100378 (Version 2)
Quarter: 2018Q1

REPORT INFORMATION
  Report Type: Report from Study
  Country: US (occurrence: US)
  Receive Date: 20171017
  Receipt Date: 20180329
  Transmission Date: 20180508
  Serious: Yes (Hospitalization)
  Sender: FDA-Public Use
  Company Number: US-ACTELION-A-US2017-161097

PATIENT
  Age: 76 Year
  Sex: Female

DRUGS (9)
  1. PLAVIX [Concomitant]
     Active Substance: CLOPIDOGREL BISULFATE
  2. ASPIRIN. [Concomitant]
     Active Substance: ASPIRIN
  3. HUMULIN NOS [Concomitant]
     Active Substance: INSULIN HUMAN
  4. SYNTHROID [Concomitant]
     Active Substance: LEVOTHYROXINE SODIUM
  5. LUMIGAN [Concomitant]
     Active Substance: BIMATOPROST
  6. OPSUMIT [Suspect]
     Active Substance: MACITENTAN
     Indication: PULMONARY ARTERIAL HYPERTENSION
     Dosage: 10 MG, UNK
     Route: 048
     Dates: start: 20160211
  7. LASIX [Concomitant]
     Active Substance: FUROSEMIDE
  8. ZOCOR [Concomitant]
     Active Substance: SIMVASTATIN
  9. NEURONTIN [Concomitant]
     Active Substance: GABAPENTIN

REACTIONS (5)
  - Cardiac operation [Unknown]
  - Stent placement [Recovered/Resolved]
  - Diabetes mellitus [Unknown]
  - Depression [Unknown]
  - Sleep apnoea syndrome [Unknown]

NARRATIVE: CASE EVENT DATE: 20180315
